FAERS Safety Report 10416405 (Version 1)
Quarter: 2014Q3

REPORT INFORMATION
  Report Type: Spontaneous
  Country: US (occurrence: None)
  Receive Date: 20140827
  Receipt Date: 20140827
  Transmission Date: 20150326
  Serious: Yes (Disabling)
  Sender: FDA-Public Use
  Company Number: None

PATIENT
  Age: 59 Year
  Sex: Male
  Weight: 58.97 kg

DRUGS (1)
  1. CLARITIN-D 12 HOUR [Suspect]
     Active Substance: LORATADINE\PSEUDOEPHEDRINE SULFATE
     Dosage: ONCE A DAY ONCE DAILY TAKEN BY MOUTH
     Route: 048
     Dates: start: 20140822, end: 20140826

REACTIONS (2)
  - Urinary retention [None]
  - Bladder disorder [None]

NARRATIVE: CASE EVENT DATE: 20140822
